FAERS Safety Report 9731769 (Version 3)
Quarter: 2013Q4

REPORT INFORMATION
  Report Type: Spontaneous
  Country: US (occurrence: US)
  Receive Date: 20131205
  Receipt Date: 20131216
  Transmission Date: 20140711
  Serious: Yes (Hospitalization, Other)
  Sender: FDA-Public Use
  Company Number: US-UCBSA-093405

PATIENT
  Age: 36 Year
  Sex: Female

DRUGS (2)
  1. CIMZIA [Suspect]
     Indication: CROHN^S DISEASE
     Dates: start: 20081230
  2. CIMZIA [Suspect]
     Indication: CROHN^S DISEASE
     Dosage: EXP DATE:FEB-16
     Dates: start: 20111003

REACTIONS (2)
  - Crohn^s disease [Not Recovered/Not Resolved]
  - Product quality issue [Unknown]
